FAERS Safety Report 24575966 (Version 1)
Quarter: 2024Q4

REPORT INFORMATION
  Report Type: Spontaneous
  Country: US (occurrence: None)
  Receive Date: 20241102
  Receipt Date: 20241102
  Transmission Date: 20250115
  Serious: Yes (Other)
  Sender: Public
  Company Number: None

PATIENT
  Age: 33 Year
  Sex: Female
  Weight: 54 kg

DRUGS (3)
  1. COSMETICS [Suspect]
     Active Substance: COSMETICS
     Dates: start: 20230812, end: 20230901
  2. VITAMINS [Concomitant]
     Active Substance: VITAMINS
  3. liquid iron supplement [Concomitant]

REACTIONS (3)
  - Expired product administered [None]
  - Product expiration date issue [None]
  - Rash [None]

NARRATIVE: CASE EVENT DATE: 20230930
